FAERS Safety Report 23405592 (Version 1)
Quarter: 2024Q1

REPORT INFORMATION
  Report Type: Spontaneous
  Country: US (occurrence: None)
  Receive Date: 20240113
  Receipt Date: 20240113
  Transmission Date: 20240409
  Serious: Yes (Other)
  Sender: FDA-Public Use
  Company Number: None

PATIENT
  Age: 80 Year
  Sex: Female

DRUGS (1)
  1. DROXIDOPA [Suspect]
     Active Substance: DROXIDOPA
     Indication: Autonomic neuropathy
     Dosage: FREQUENCY : 3 TIMES A DAY;?

REACTIONS (7)
  - Product dose omission in error [None]
  - Somnolence [None]
  - Fall [None]
  - Dizziness [None]
  - Syncope [None]
  - Skin laceration [None]
  - Joint injury [None]
